FAERS Safety Report 10203977 (Version 1)
Quarter: 2014Q2

REPORT INFORMATION
  Report Type: Spontaneous
  Country: US (occurrence: US)
  Receive Date: 20140529
  Receipt Date: 20140529
  Transmission Date: 20141212
  Serious: No
  Sender: FDA-Public Use
  Company Number: US-009507513-1405USA004319

PATIENT
  Age: 2 Year
  Sex: 0

DRUGS (1)
  1. MIRALAX [Suspect]
     Indication: PRODUCT USED FOR UNKNOWN INDICATION
     Dosage: UNK, UNKNOWN
     Route: 048
     Dates: start: 2014, end: 20140426

REACTIONS (4)
  - Faecal volume increased [Not Recovered/Not Resolved]
  - Drug administered to patient of inappropriate age [Unknown]
  - Off label use [Unknown]
  - Drug prescribing error [Unknown]
